FAERS Safety Report 8918991 (Version 1)
Quarter: 2012Q4

REPORT INFORMATION
  Report Type: 
  Country: US (occurrence: US)
  Receive Date: 20121121
  Receipt Date: 20121121
  Transmission Date: 20130627
  Serious: No
  Sender: FDA-Public Use
  Company Number: US-ASTRAZENECA-2012SE23351

PATIENT
  Age: 46 Year
  Sex: Male

DRUGS (10)
  1. NEXIUM [Suspect]
     Route: 048
  2. AMBIEN [Concomitant]
     Indication: SLEEP DISORDER
  3. ASPIRIN [Concomitant]
  4. CARBIDOPA/LEVO [Concomitant]
  5. ELOCON CREAM [Concomitant]
  6. LEVBID [Concomitant]
  7. REMERON [Concomitant]
  8. REQUIP XL [Concomitant]
  9. VALIUM [Concomitant]
     Indication: NERVOUS SYSTEM DISORDER
  10. EVALAND [Concomitant]
     Indication: PARKINSON^S DISEASE

REACTIONS (3)
  - Nervous system disorder [Unknown]
  - Parkinson^s disease [Unknown]
  - Sleep disorder [Unknown]
